FAERS Safety Report 12994535 (Version 2)
Quarter: 2016Q4

REPORT INFORMATION
  Report Type: Spontaneous
  Country: FR (occurrence: FR)
  Receive Date: 20161202
  Receipt Date: 20161229
  Transmission Date: 20170207
  Serious: Yes (Death)
  Sender: FDA-Public Use
  Company Number: FR-EMCURE PHARMS-2016HTG00289

PATIENT
  Age: 65 Year
  Sex: Female

DRUGS (29)
  1. ENDOXAN [Suspect]
     Active Substance: CYCLOPHOSPHAMIDE
     Indication: TRANSPLANT
     Dosage: 2535 MG, 1X/DAY
     Route: 042
     Dates: start: 20161106, end: 20161108
  2. MABTHERA [Suspect]
     Active Substance: RITUXIMAB
     Indication: TRANSPLANT
     Dosage: 860 MG, ONCE
     Route: 042
     Dates: start: 20161105, end: 20161105
  3. QUITAXON [Concomitant]
     Active Substance: DOXEPIN HYDROCHLORIDE
     Dosage: 100 MG, 1X/DAY
  4. EMEND [Concomitant]
     Active Substance: APREPITANT
     Dosage: UNK
     Dates: start: 20161107, end: 20161107
  5. POLARAMINE [Concomitant]
     Active Substance: DEXCHLORPHENIRAMINE MALEATE
     Dosage: 1 VIAL
     Dates: start: 20161105, end: 20161105
  6. PERFALGAN [Concomitant]
     Active Substance: ACETAMINOPHEN
     Dosage: 1 G, UNK
     Dates: start: 20161105, end: 20161105
  7. AXEPIM [Concomitant]
     Active Substance: CEFEPIME HYDROCHLORIDE
     Dosage: UNK
     Dates: start: 20161109, end: 20161111
  8. NACL IV [Concomitant]
     Dosage: UNK
     Route: 042
     Dates: start: 20161105, end: 20161105
  9. ACUPAN [Concomitant]
     Active Substance: NEFOPAM HYDROCHLORIDE
     Dosage: 1 VIAL
     Dates: start: 20161109, end: 20161109
  10. CYTARABINE KABI (ARACYTINE) [Suspect]
     Active Substance: CYTARABINE
     Indication: TRANSPLANT
     Dosage: 338 MG, 2X/DAY
     Route: 042
     Dates: start: 20161106, end: 20161109
  11. ESIDREX [Concomitant]
     Active Substance: HYDROCHLOROTHIAZIDE
     Dosage: 12.5 MG, 1X/DAY
     Dates: start: 20161106, end: 20161106
  12. BICNU [Suspect]
     Active Substance: CARMUSTINE
     Indication: TRANSPLANT
     Dosage: 507 MG, ONCE
     Route: 042
     Dates: start: 20161105, end: 20161105
  13. ETOPOPHOS [Suspect]
     Active Substance: ETOPOSIDE PHOSPHATE
     Indication: TRANSPLANT
     Dosage: 172 MG, 2X/DAY
     Route: 042
     Dates: start: 20161106, end: 20161106
  14. ORACILLINE [Concomitant]
     Active Substance: PENICILLIN V
     Dosage: UNK, 2X/DAY
  15. PRIMPERAN [Concomitant]
     Active Substance: METOCLOPRAMIDE HYDROCHLORIDE
     Dosage: 1 VIAL
     Dates: start: 20161109, end: 20161109
  16. ETOPSIDE MYLAN [Suspect]
     Active Substance: ETOPOSIDE
     Indication: TRANSPLANT
     Dosage: 169 MG, 2X/DAY
     Route: 042
     Dates: start: 20161107, end: 20161109
  17. CHIBRO CADRON COLLYRE [Concomitant]
     Dosage: WHILE RECIVING CYTARABINE
  18. MESNA EG LABO [Concomitant]
     Dosage: 1200 MG, UNK
     Route: 042
     Dates: start: 20161106, end: 20161108
  19. AMIKLIN [Concomitant]
     Active Substance: AMIKACIN SULFATE
     Dosage: 1500 MG, UNK
     Dates: start: 20161109, end: 20161109
  20. HYDROXYZINE [Concomitant]
     Active Substance: HYDROXYZINE\HYDROXYZINE HYDROCHLORIDE
     Dosage: 25 MG, 1X/DAY
  21. ZOPHREN [Concomitant]
     Active Substance: ONDANSETRON
     Dosage: 2 DOSAGE UNITS, 1X/DAY
     Dates: start: 20161105, end: 20161105
  22. EMEND [Concomitant]
     Active Substance: APREPITANT
     Dosage: 80 MG, UNK
     Dates: start: 20160808, end: 20160808
  23. SOLU-MEDROL [Concomitant]
     Active Substance: METHYLPREDNISOLONE SODIUM SUCCINATE
     Dosage: 1MG/KG WHILE RECIVING CYTARABINE
     Dates: start: 20161105, end: 20161109
  24. LASILIX [Concomitant]
     Active Substance: FUROSEMIDE
     Dosage: 20 MG, UNK
     Dates: start: 20161108, end: 20161108
  25. EPOETIN ALFA [Concomitant]
     Active Substance: ERYTHROPOIETIN
     Dosage: UNK, 1X/WEEK
  26. MOVICOL [Concomitant]
     Active Substance: POLYETHYLENE GLYCOL 3350\POTASSIUM CHLORIDE\SODIUM BICARBONATE\SODIUM CHLORIDE
     Dosage: 2 BAGS DAILY AS NEEDED
  27. EMEND [Concomitant]
     Active Substance: APREPITANT
     Dosage: 125 MG, UNK
     Route: 042
     Dates: start: 20161106, end: 20161106
  28. EMEND [Concomitant]
     Active Substance: APREPITANT
     Dosage: 80 MG, UNK
     Dates: start: 20161109, end: 20161109
  29. PRIMPERAN [Concomitant]
     Active Substance: METOCLOPRAMIDE HYDROCHLORIDE
     Dosage: 10 MG, UNK
     Dates: start: 20161108, end: 20161108

REACTIONS (8)
  - Diarrhoea [Unknown]
  - Cardiotoxicity [Fatal]
  - Hypertension [None]
  - Tachycardia [None]
  - Cardiomegaly [None]
  - Pulmonary toxicity [Fatal]
  - Dysuria [Unknown]
  - Hyperhidrosis [None]

NARRATIVE: CASE EVENT DATE: 20161108
